FAERS Safety Report 6037798-5 (Version None)
Quarter: 2009Q1

REPORT INFORMATION
  Report Type: 
  Country: None (occurrence: None)
  Receive Date: 20090113
  Receipt Date: 20090102
  Transmission Date: 20090719
  Serious: Yes (Hospitalization)
  Sender: FDA-Public Use
  Company Number: 110933

PATIENT
  Age: 37 Year
  Sex: Male

DRUGS (4)
  1. IBUPROFEN [Suspect]
     Indication: PAIN
     Dosage: 400MG/TID/ORAL USE
     Dates: start: 20081103, end: 20081127
  2. ANADIN EXTRA [Suspect]
     Indication: PAIN
     Dosage: 2DF/ EVERY 4 HOURS/ORAL/USE
     Dates: start: 20081103, end: 20081127
  3. ACETAMINOPHEN W/ CODEINE [Concomitant]
  4. ACETAMINOPHEN [Concomitant]

REACTIONS (1)
  - DUODENAL ULCER PERFORATION [None]
